FAERS Safety Report 18732146 (Version 5)
Quarter: 2021Q1

REPORT INFORMATION
  Report Type: Report from Study
  Country: US (occurrence: US)
  Receive Date: 20210113
  Receipt Date: 20210223
  Transmission Date: 20210419
  Serious: Yes (Hospitalization)
  Sender: FDA-Public Use
  Company Number: US-SEATTLE GENETICS-2021SGN00054

PATIENT
  Sex: Female

DRUGS (2)
  1. TUCATINIB [Suspect]
     Active Substance: TUCATINIB
     Indication: BREAST CANCER FEMALE
     Dosage: 300 MG, BID
     Route: 048
  2. TUCATINIB [Suspect]
     Active Substance: TUCATINIB
     Indication: BONE MARROW DISORDER

REACTIONS (13)
  - Clostridium difficile infection [Unknown]
  - Fatigue [Unknown]
  - Myalgia [Unknown]
  - Migraine [Unknown]
  - Decreased appetite [Unknown]
  - Pyrexia [Unknown]
  - Platelet count decreased [Unknown]
  - Haematochezia [Unknown]
  - Vomiting [Recovering/Resolving]
  - Dehydration [Unknown]
  - Diarrhoea [Unknown]
  - Dysgeusia [Unknown]
  - Constipation [Unknown]
